FAERS Safety Report 24117283 (Version 2)
Quarter: 2024Q3

REPORT INFORMATION
  Report Type: Spontaneous
  Country: US (occurrence: US)
  Receive Date: 20240722
  Receipt Date: 20240722
  Transmission Date: 20241017
  Serious: Yes (Death, Other)
  Sender: ROCHE
  Company Number: None

PATIENT
  Age: 68 Year
  Sex: Male
  Weight: 84 kg

DRUGS (7)
  1. MYCOPHENOLATE MOFETIL [Suspect]
     Active Substance: MYCOPHENOLATE MOFETIL
     Indication: Prophylaxis against transplant rejection
     Dosage: DAY OF TRANSPLANT
     Route: 065
  2. MYCOPHENOLATE MOFETIL [Suspect]
     Active Substance: MYCOPHENOLATE MOFETIL
     Dosage: DAY 4 POST-TRANSPLANT
     Route: 065
  3. METHYLPREDNISOLONE [Suspect]
     Active Substance: METHYLPREDNISOLONE
     Indication: Prophylaxis against transplant rejection
     Dosage: ON DAY OF TRANSPLANT
     Route: 042
  4. METHYLPREDNISOLONE [Suspect]
     Active Substance: METHYLPREDNISOLONE
     Dosage: 40MG DAILY FOR 3 DAYS
     Route: 042
  5. BASILIXIMAB [Suspect]
     Active Substance: BASILIXIMAB
     Indication: Prophylaxis against transplant rejection
     Dosage: DAY 4 POST-TRANSPLANT
     Route: 042
  6. BASILIXIMAB [Suspect]
     Active Substance: BASILIXIMAB
     Dosage: EVERY 12 HOURS,
     Route: 042
  7. VALGANCICLOVIR [Concomitant]
     Active Substance: VALGANCICLOVIR
     Indication: Prophylaxis

REACTIONS (9)
  - Acute kidney injury [Fatal]
  - Cytokine release syndrome [Unknown]
  - Acute hepatic failure [Fatal]
  - Haemophagocytic lymphohistiocytosis [Unknown]
  - Hypocomplementaemia [Unknown]
  - Multiple organ dysfunction syndrome [Fatal]
  - Shock [Unknown]
  - Haemodynamic instability [Unknown]
  - Sepsis [Fatal]
